FAERS Safety Report 18296798 (Version 2)
Quarter: 2020Q4

REPORT INFORMATION
  Report Type: Spontaneous
  Country: IN (occurrence: NO)
  Receive Date: 20200922
  Receipt Date: 20201014
  Transmission Date: 20210113
  Serious: Yes (Other)
  Sender: FDA-Public Use
  Company Number: NO-TAKEDA-2020TEU008507

PATIENT

DRUGS (4)
  1. LANSPORAZOLE [Suspect]
     Active Substance: LANSOPRAZOLE
     Indication: PRODUCT USED FOR UNKNOWN INDICATION
     Dosage: UNK
     Route: 065
  2. ESOMEPRAZOLE. [Suspect]
     Active Substance: ESOMEPRAZOLE MAGNESIUM
     Indication: PRODUCT USED FOR UNKNOWN INDICATION
     Dosage: UNK
     Route: 065
  3. RABEPRAZOLE [Suspect]
     Active Substance: RABEPRAZOLE
     Indication: PRODUCT USED FOR UNKNOWN INDICATION
     Dosage: UNK
     Route: 065
  4. PANTOPRAZOLE [Suspect]
     Active Substance: PANTOPRAZOLE
     Indication: PRODUCT USED FOR UNKNOWN INDICATION
     Dosage: UNK
     Route: 065

REACTIONS (7)
  - Ataxia [Recovered/Resolved]
  - Peroneal nerve palsy [Recovered/Resolved]
  - Muscular weakness [Recovered/Resolved]
  - Paralysis [Recovered/Resolved]
  - Myopathy [Recovered/Resolved]
  - Neuropathy peripheral [Unknown]
  - Essential tremor [Recovered/Resolved]
